FAERS Safety Report 17254084 (Version 1)
Quarter: 2020Q1

REPORT INFORMATION
  Report Type: Spontaneous
  Country: US (occurrence: US)
  Receive Date: 20200109
  Receipt Date: 20200109
  Transmission Date: 20200409
  Serious: No
  Sender: FDA-Public Use
  Company Number: US-OPTINOSE US, INC-2019OPT001003

PATIENT
  Age: 44 Year
  Sex: Female
  Weight: 59.93 kg

DRUGS (3)
  1. XHANCE [Suspect]
     Active Substance: FLUTICASONE PROPIONATE
     Indication: NASAL POLYPS
     Route: 045
     Dates: start: 201905
  2. SINGULAIR [Concomitant]
     Active Substance: MONTELUKAST SODIUM
     Indication: SINUS DISORDER
     Dosage: NIGHTLY
     Route: 048
     Dates: start: 201812
  3. XOLAIR [Concomitant]
     Active Substance: OMALIZUMAB
     Indication: SOLAR URTICARIA
     Dates: start: 201608

REACTIONS (2)
  - Product dose omission [Unknown]
  - Sinus operation [Unknown]

NARRATIVE: CASE EVENT DATE: 20190926
